FAERS Safety Report 8887417 (Version 1)
Quarter: 2012Q4

REPORT INFORMATION
  Report Type: 
  Country: CN (occurrence: CN)
  Receive Date: 20121105
  Receipt Date: 20121105
  Transmission Date: 20130627
  Serious: Yes (Hospitalization)
  Sender: FDA-Public Use
  Company Number: CN-BAYER-2012-115143

PATIENT
  Age: 71 Year
  Sex: Male

DRUGS (1)
  1. ACETYLSALICYLIC ACID (} 100 MG) [Suspect]
     Indication: CEREBRAL INFARCTION
     Dosage: 0.1 g, QD
     Route: 048
     Dates: start: 20030101, end: 20101230

REACTIONS (2)
  - Faeces discoloured [Recovering/Resolving]
  - Haematemesis [Recovering/Resolving]
